FAERS Safety Report 8023291-7 (Version None)
Quarter: 2012Q1

REPORT INFORMATION
  Report Type: 
  Country: None (occurrence: None)
  Receive Date: 20120104
  Receipt Date: 20111221
  Transmission Date: 20120608
  Serious: Yes (Other)
  Sender: FDA-Public Use
  Company Number: US-MYLANLABS-2011S1026324

PATIENT
  Age: 59 Year
  Sex: Female
  Weight: 87 kg

DRUGS (2)
  1. LETROZOLE [Suspect]
     Route: 048
  2. METHADONE HCL [Interacting]
     Dosage: 6MG DOSE GIVEN ON DAYS 1 AND 15
     Route: 040

REACTIONS (5)
  - RESPIRATORY DEPRESSION [None]
  - HYPOTENSION [None]
  - SOMNOLENCE [None]
  - HEADACHE [None]
  - NAUSEA [None]
